FAERS Safety Report 17358867 (Version 1)
Quarter: 2020Q1

REPORT INFORMATION
  Report Type: Spontaneous
  Country: FR (occurrence: FR)
  Receive Date: 20200202
  Receipt Date: 20200202
  Transmission Date: 20200409
  Serious: Yes (Hospitalization, Other)
  Sender: FDA-Public Use
  Company Number: FR-PFIZER INC-2020035951

PATIENT
  Age: 32 Year
  Sex: Male

DRUGS (1)
  1. IBUPROFEN. [Suspect]
     Active Substance: IBUPROFEN
     Indication: INFLUENZA LIKE ILLNESS
     Dosage: 1000 MG, 1X/DAY
     Route: 048
     Dates: start: 20191210, end: 20191212

REACTIONS (1)
  - Necrotising fasciitis streptococcal [Recovered/Resolved]

NARRATIVE: CASE EVENT DATE: 20191212
